FAERS Safety Report 15307019 (Version 2)
Quarter: 2018Q3

REPORT INFORMATION
  Report Type: Spontaneous
  Country: CH (occurrence: CH)
  Receive Date: 20180822
  Receipt Date: 20180828
  Transmission Date: 20181010
  Serious: Yes (Hospitalization, Other)
  Sender: FDA-Public Use
  Company Number: CH-MYLANLABS-2018M1062899

PATIENT
  Age: 52 Year
  Sex: Male

DRUGS (4)
  1. TARGIN [Concomitant]
     Active Substance: NALOXONE HYDROCHLORIDE\OXYCODONE HYDROCHLORIDE
     Indication: PRODUCT USED FOR UNKNOWN INDICATION
     Dosage: 10 MG, 1?0?1?0 EVERY 12H
     Dates: start: 20180523
  2. NOVALGIN (METAMIZOLE SODIUM) [Suspect]
     Active Substance: METAMIZOLE SODIUM
     Indication: BACK PAIN
     Dosage: 500 MG, 2?2?2?2
     Route: 048
     Dates: start: 20180523, end: 20180531
  3. MOVICOL [Concomitant]
     Active Substance: POLYETHYLENE GLYCOL 3350\POTASSIUM CHLORIDE\SODIUM BICARBONATE\SODIUM CHLORIDE
     Indication: PRODUCT USED FOR UNKNOWN INDICATION
     Dosage: MACROGOL 13.125 G, NATRIUMHYDROGENCARBONAT 178.5 MG, NACL 350.7 MG, KCL 46.6 MG) 1?0?0?0
     Route: 048
     Dates: start: 20180523
  4. BRUFEN 400 MG [Suspect]
     Active Substance: IBUPROFEN
     Indication: BACK PAIN
     Dosage: BRUFEN FILMTABL 400 MG (IBUPROFEN 400 MG) 1?1?1?1 SEIT MIND. MITTE MAI 2018 400 MG 1?1?1?1
     Dates: start: 201805, end: 20180531

REACTIONS (2)
  - Upper gastrointestinal haemorrhage [Recovered/Resolved]
  - Shock haemorrhagic [Recovered/Resolved]

NARRATIVE: CASE EVENT DATE: 20180531
